FAERS Safety Report 6539617-7 (Version None)
Quarter: 2010Q1

REPORT INFORMATION
  Report Type: 
  Country: None (occurrence: None)
  Receive Date: 20100115
  Receipt Date: 20100111
  Transmission Date: 20100710
  Serious: Yes (Other)
  Sender: FDA-Public Use
  Company Number: US-JNJFOC-20100103345

PATIENT
  Age: 68 Year
  Sex: Female
  Weight: 82.1 kg

DRUGS (1)
  1. DOXIL [Suspect]
     Indication: BREAST CANCER
     Dosage: DOSE ADMINISTERED OVER 5-10 MINUTES
     Route: 042

REACTIONS (2)
  - INCORRECT DRUG ADMINISTRATION RATE [None]
  - WRONG DRUG ADMINISTERED [None]
